FAERS Safety Report 9882201 (Version 2)
Quarter: 2014Q1

REPORT INFORMATION
  Report Type: Spontaneous
  Country: US (occurrence: US)
  Receive Date: 20140207
  Receipt Date: 20140313
  Transmission Date: 20141002
  Serious: Yes (Other)
  Sender: FDA-Public Use
  Company Number: US-TEVA-461347USA

PATIENT
  Age: 29 Year
  Sex: Female
  Weight: 64.92 kg

DRUGS (3)
  1. PARAGARD 380A [Suspect]
     Indication: CONTRACEPTION
     Route: 015
     Dates: start: 20131212, end: 20140128
  2. PROZAC [Concomitant]
     Route: 048
  3. PRENATAL VITAMINS [Concomitant]
     Indication: POSTPARTUM STATE
     Route: 048

REACTIONS (2)
  - Device dislocation [Recovered/Resolved]
  - Menorrhagia [Recovered/Resolved]
